FAERS Safety Report 7128594-6 (Version None)
Quarter: 2010Q4

REPORT INFORMATION
  Report Type: 
  Country: None (occurrence: None)
  Receive Date: 20101130
  Receipt Date: 20101124
  Transmission Date: 20110411
  Serious: Yes (Other)
  Sender: FDA-Public Use
  Company Number: DE-SANOFI-AVENTIS-2010SA062698

PATIENT
  Sex: Female

DRUGS (1)
  1. ARAVA [Suspect]
     Route: 048
     Dates: start: 20101001

REACTIONS (2)
  - LOSS OF CONSCIOUSNESS [None]
  - STOMATITIS [None]
